FAERS Safety Report 7609856-2 (Version None)
Quarter: 2011Q3

REPORT INFORMATION
  Report Type: 
  Country: None (occurrence: None)
  Receive Date: 20110714
  Receipt Date: 20110705
  Transmission Date: 20111222
  Serious: Yes (Life-Threatening)
  Sender: FDA-Public Use
  Company Number: FR-BAXTER-2011BH022040

PATIENT
  Age: 61 Year
  Sex: Male

DRUGS (4)
  1. GAMMAGARD LIQUID [Suspect]
     Indication: OFF LABEL USE
     Route: 042
     Dates: start: 20110624, end: 20110624
  2. GAMMAGARD LIQUID [Suspect]
     Indication: POLYNEUROPATHY
     Route: 042
     Dates: start: 20110624, end: 20110624
  3. GAMMAGARD LIQUID [Suspect]
     Route: 042
     Dates: start: 20110624, end: 20110624
  4. GAMMAGARD LIQUID [Suspect]
     Route: 042
     Dates: start: 20110624, end: 20110624

REACTIONS (3)
  - CYANOSIS [None]
  - OXYGEN SATURATION DECREASED [None]
  - CHILLS [None]
